FAERS Safety Report 10173750 (Version 2)
Quarter: 2014Q3

REPORT INFORMATION
  Report Type: Spontaneous
  Country: NZ (occurrence: NZ)
  Receive Date: 20140515
  Receipt Date: 20140925
  Transmission Date: 20150326
  Serious: Yes (Other)
  Sender: FDA-Public Use
  Company Number: NZ-ELI_LILLY_AND_COMPANY-NZ201405001345

PATIENT
  Sex: Female

DRUGS (6)
  1. ZYPREXA RELPREVV [Suspect]
     Active Substance: OLANZAPINE PAMOATE
     Dosage: 210 MG, 2/M
     Route: 030
  2. ZYPREXA RELPREVV [Suspect]
     Active Substance: OLANZAPINE PAMOATE
     Indication: BIPOLAR DISORDER
     Dosage: 300 MG, 2/M
     Route: 030
     Dates: start: 20140512, end: 20140730
  3. EPILIM [Concomitant]
     Active Substance: VALPROATE SODIUM
     Dosage: 1500 MG, EACH EVENING
     Route: 048
  4. ZYPREXA [Suspect]
     Active Substance: OLANZAPINE
     Indication: PRODUCT USED FOR UNKNOWN INDICATION
     Dosage: 5 MG, EACH EVENING
     Route: 048
     Dates: end: 20140806
  5. ZYPREXA RELPREVV [Suspect]
     Active Substance: OLANZAPINE PAMOATE
     Dosage: 300 MG, OTHER
  6. LITHIUM [Concomitant]
     Active Substance: LITHIUM CARBONATE
     Dosage: 1000 MG, EACH EVENING
     Route: 048

REACTIONS (6)
  - Confusional state [Unknown]
  - Sedation [Unknown]
  - Memory impairment [Unknown]
  - Fatigue [Unknown]
  - Hypoaesthesia [Recovered/Resolved]
  - Hunger [Unknown]
